FAERS Safety Report 4415201-6 (Version None)
Quarter: 2004Q3

REPORT INFORMATION
  Report Type: 
  Country: None (occurrence: None)
  Receive Date: 20040730
  Receipt Date: 20040716
  Transmission Date: 20050211
  Serious: Yes (Hospitalization, Other)
  Sender: FDA-Public Use
  Company Number: USA-2004-0016007

PATIENT
  Age: 46 Year
  Sex: Female

DRUGS (1)
  1. OXYCONTIN [Suspect]
     Dosage: 40 MG, INTRAVENOUS
     Route: 042

REACTIONS (5)
  - BRONCHITIS [None]
  - COMA [None]
  - DRUG ABUSER [None]
  - MEDICATION ERROR [None]
  - PNEUMONIA ASPIRATION [None]
